FAERS Safety Report 19691083 (Version 1)
Quarter: 2021Q3

REPORT INFORMATION
  Report Type: Spontaneous
  Country: US (occurrence: US)
  Receive Date: 20210812
  Receipt Date: 20210812
  Transmission Date: 20211014
  Serious: No
  Sender: FDA-Public Use
  Company Number: None

PATIENT
  Age: 54 Year
  Sex: Female
  Weight: 87.75 kg

DRUGS (14)
  1. IC MONTELUKAST SOD 10 MG TABLET [Suspect]
     Active Substance: MONTELUKAST SODIUM
     Indication: ASTHMA
     Dosage: ?          QUANTITY:1 TABLET(S);?
     Route: 048
     Dates: start: 20210807, end: 20210810
  2. ARMODAFINIL. [Concomitant]
     Active Substance: ARMODAFINIL
  3. MELATONIN [Concomitant]
     Active Substance: MELATONIN
  4. MULTIVITAMIN [Concomitant]
     Active Substance: VITAMINS
  5. CPAP MACHINE [Concomitant]
  6. LEVETIRACETAM. [Concomitant]
     Active Substance: LEVETIRACETAM
  7. CETIRIZINE [Concomitant]
     Active Substance: CETIRIZINE HYDROCHLORIDE
  8. REXULTI [Concomitant]
     Active Substance: BREXPIPRAZOLE
  9. AZELASTINE HCL [Concomitant]
     Active Substance: AZELASTINE HYDROCHLORIDE
  10. VENLAFAXINE HYDROCHLORIDE. [Concomitant]
     Active Substance: VENLAFAXINE HYDROCHLORIDE
  11. FLUTICASONE. [Concomitant]
     Active Substance: FLUTICASONE
  12. CROMOLYN SODIUM. [Concomitant]
     Active Substance: CROMOLYN SODIUM
  13. PANTOPRAZOLE [Concomitant]
     Active Substance: PANTOPRAZOLE
  14. MIRTAZAPINE. [Concomitant]
     Active Substance: MIRTAZAPINE

REACTIONS (8)
  - Fear [None]
  - Suicidal ideation [None]
  - Irritability [None]
  - Disorientation [None]
  - Feeling of despair [None]
  - Pain [None]
  - Agitation [None]
  - Crying [None]

NARRATIVE: CASE EVENT DATE: 20210811
